FAERS Safety Report 4758747-3 (Version None)
Quarter: 2005Q3

REPORT INFORMATION
  Report Type: 
  Country: None (occurrence: None)
  Receive Date: 20050831
  Receipt Date: 20050831
  Transmission Date: 20060218
  Serious: Yes (Other)
  Sender: FDA-Public Use
  Company Number: None

PATIENT
  Age: 31 Year
  Sex: Male
  Weight: 87 kg

DRUGS (1)
  1. RESTORIL [Suspect]
     Indication: SOMNOLENCE
     Dosage: 15 MG /QHS/PO
     Route: 048
     Dates: start: 20050607

REACTIONS (2)
  - PAINFUL ERECTION [None]
  - PRIAPISM [None]
